FAERS Safety Report 5570460-1 (Version None)
Quarter: 2007Q4

REPORT INFORMATION
  Report Type: 
  Country: None (occurrence: None)
  Receive Date: 20071221
  Receipt Date: 20070920
  Transmission Date: 20080405
  Serious: No
  Sender: FDA-Public Use
  Company Number: US-BRISTOL-MYERS SQUIBB COMPANY-13914288

PATIENT
  Age: 85 Year
  Sex: Female
  Weight: 54 kg

DRUGS (20)
  1. ORENCIA [Suspect]
     Indication: RHEUMATOID ARTHRITIS
     Dosage: 5 INFUSIONS TAKEN.
  2. PREDNISONE [Concomitant]
  3. VESICARE [Concomitant]
  4. VITAMIN B-12 [Concomitant]
  5. CENTRUM [Concomitant]
  6. GLUCOSAMINE SULFATE [Concomitant]
  7. CHONDROITIN SULFATE [Concomitant]
  8. FOLIC ACID [Concomitant]
  9. IRON [Concomitant]
  10. OS-CAL [Concomitant]
  11. VITAMIN D [Concomitant]
  12. PROTONIX [Concomitant]
  13. SIMVASTATIN [Concomitant]
  14. VYTORIN [Concomitant]
  15. ALPRAZOLAM [Concomitant]
  16. AMOXICILLIN BRAND UNKNOWN [Concomitant]
  17. GLYCOLAX [Concomitant]
  18. PERCOCET [Concomitant]
  19. TYLENOL [Concomitant]
  20. CARAFATE [Concomitant]

REACTIONS (2)
  - ARTHRALGIA [None]
  - PAIN IN EXTREMITY [None]
